FAERS Safety Report 4433219-4 (Version None)
Quarter: 2004Q3

REPORT INFORMATION
  Report Type: 
  Country: None (occurrence: None)
  Receive Date: 20040823
  Receipt Date: 20040809
  Transmission Date: 20050211
  Serious: Yes (Disabling)
  Sender: FDA-Public Use
  Company Number: 2004-CN-00287CN

PATIENT
  Age: 70 Year
  Sex: Female

DRUGS (1)
  1. SPIRIVA [Suspect]
     Dosage: (18 MCG)
     Route: 055

REACTIONS (4)
  - HOT FLUSH [None]
  - MUSCULOSKELETAL STIFFNESS [None]
  - NAUSEA [None]
  - VISUAL DISTURBANCE [None]
